FAERS Safety Report 7419818-6 (Version None)
Quarter: 2011Q2

REPORT INFORMATION
  Report Type: 
  Country: None (occurrence: None)
  Receive Date: 20110413
  Receipt Date: 20110413
  Transmission Date: 20111010
  Serious: No
  Sender: FDA-Public Use
  Company Number: None

PATIENT
  Age: 68 Year
  Sex: Female
  Weight: 75.2971 kg

DRUGS (1)
  1. LEVAQUIN [Suspect]
     Indication: PNEUMONIA
     Dosage: 1 TAB 1X DAILY ORAL
     Route: 048
     Dates: start: 20110308, end: 20110318

REACTIONS (7)
  - HEADACHE [None]
  - HEART RATE INCREASED [None]
  - DIZZINESS [None]
  - HYPERTENSION [None]
  - BLOOD PRESSURE DIASTOLIC INCREASED [None]
  - BLOOD PRESSURE FLUCTUATION [None]
  - PRURITUS [None]
